FAERS Safety Report 6832082 (Version 1)
Quarter: 2020Q3

REPORT INFORMATION
  Report Type: Report from Study
  Country: US (occurrence: US)
  Receive Date: 20081204
  Receipt Date: 20081204
  Transmission Date: 20201105
  Serious: Yes (Hospitalization, Other)
  Sender: FDA-Public Use
  Company Number: US-ROCHE-599148

PATIENT
  Age: 53 Year
  Sex: Female

DRUGS (18)
  1. TOPAMAX [Concomitant]
     Active Substance: TOPIRAMATE
  2. OMEPRAZOLE. [Concomitant]
     Active Substance: OMEPRAZOLE
  3. PREDNISONE. [Concomitant]
     Active Substance: PREDNISONE
  4. ALPRAZOLAM. [Concomitant]
     Active Substance: ALPRAZOLAM
     Dosage: DRUG NAME: ALPRAZOLAM ER
  5. DILANTIN [Concomitant]
     Active Substance: PHENYTOIN
  6. PLAVIX [Concomitant]
     Active Substance: CLOPIDOGREL BISULFATE
  7. CYTOXAN [Suspect]
     Active Substance: CYCLOPHOSPHAMIDE
     Indication: PRODUCT USED FOR UNKNOWN INDICATION
     Route: 065
  8. BENADRYL [Concomitant]
     Active Substance: DIPHENHYDRAMINE HYDROCHLORIDE
  9. IBANDRONIC ACID. [Suspect]
     Active Substance: IBANDRONIC ACID
     Indication: OSTEOPOROSIS
     Route: 065
  10. CALCIUM/VITAMIN D [Concomitant]
     Active Substance: CALCIUM\VITAMIN D
  11. KEPPRA [Concomitant]
     Active Substance: LEVETIRACETAM
  12. CALCITRIOL. [Concomitant]
     Active Substance: CALCITRIOL
  13. HYDROCODONE [Concomitant]
     Active Substance: HYDROCODONE
  14. METOPROLOL. [Concomitant]
     Active Substance: METOPROLOL
  15. ASPIRIN. [Concomitant]
     Active Substance: ASPIRIN
  16. LEVOTHYROXINE. [Concomitant]
     Active Substance: LEVOTHYROXINE
  17. TYLENOL [Concomitant]
     Active Substance: ACETAMINOPHEN
     Dosage: FREQUENCY: PRN (AS NECESSARY)
  18. IBANDRONIC ACID. [Suspect]
     Active Substance: IBANDRONIC ACID
     Route: 065

REACTIONS (6)
  - Nausea [Unknown]
  - Hypercalcaemia [Unknown]
  - Cerebrovascular accident [Unknown]
  - Migraine [Unknown]
  - Blindness [Unknown]
  - Amnesia [Unknown]

NARRATIVE: CASE EVENT DATE: 20080101
